FAERS Safety Report 19939154 (Version 1)
Quarter: 2021Q4

REPORT INFORMATION
  Report Type: Spontaneous
  Country: US (occurrence: US)
  Receive Date: 20211011
  Receipt Date: 20211011
  Transmission Date: 20220304
  Serious: No
  Sender: FDA-Public Use
  Company Number: US-BIOGEN-2018BI00630996

PATIENT
  Sex: Female

DRUGS (8)
  1. AVONEX PEN [Suspect]
     Active Substance: INTERFERON BETA-1A
     Indication: Multiple sclerosis
     Route: 050
     Dates: start: 201401
  2. AVONEX PEN [Suspect]
     Active Substance: INTERFERON BETA-1A
  3. AVONEX PEN [Suspect]
     Active Substance: INTERFERON BETA-1A
  4. AVONEX PEN [Suspect]
     Active Substance: INTERFERON BETA-1A
  5. CALCIUM [Concomitant]
     Active Substance: CALCIUM
     Route: 050
  6. BACLOFEN [Concomitant]
     Active Substance: BACLOFEN
     Route: 050
  7. PAROXETINE [Concomitant]
     Active Substance: PAROXETINE
     Route: 050
  8. PRAVASTATIN [Concomitant]
     Active Substance: PRAVASTATIN
     Route: 050

REACTIONS (1)
  - Drug ineffective [Unknown]
